FAERS Safety Report 9356598 (Version 1)
Quarter: 2013Q2

REPORT INFORMATION
  Report Type: Spontaneous
  Country: US (occurrence: US)
  Receive Date: 20130619
  Receipt Date: 20130619
  Transmission Date: 20140414
  Serious: No
  Sender: FDA-Public Use
  Company Number: US-US-EMD SERONO, INC.-7102924

PATIENT
  Age: 62 Year
  Sex: Male

DRUGS (1)
  1. REBIF [Suspect]
     Indication: MULTIPLE SCLEROSIS
     Route: 058
     Dates: start: 20100618

REACTIONS (7)
  - Eye disorder [Not Recovered/Not Resolved]
  - Nausea [Unknown]
  - Injection site scab [Unknown]
  - Injection site induration [Unknown]
  - Injection site warmth [Unknown]
  - Injection site bruising [Unknown]
  - Injection site pain [Unknown]
